FAERS Safety Report 16356947 (Version 1)
Quarter: 2019Q2

REPORT INFORMATION
  Report Type: Spontaneous
  Country: FR (occurrence: FR)
  Receive Date: 20190527
  Receipt Date: 20190527
  Transmission Date: 20190711
  Serious: Yes (Other)
  Sender: FDA-Public Use
  Company Number: FR-TEVA-2019-FR-1054366

PATIENT
  Age: 63 Year
  Sex: Female
  Weight: 103.9 kg

DRUGS (2)
  1. IOMERON [Suspect]
     Active Substance: IOMEPROL
     Indication: PRODUCT USED FOR UNKNOWN INDICATION
     Dates: start: 20181125, end: 20181125
  2. VANCOMYCINE [Suspect]
     Active Substance: VANCOMYCIN
     Indication: SUPERINFECTION BACTERIAL
     Route: 041
     Dates: start: 20131110, end: 20131127

REACTIONS (1)
  - Acute generalised exanthematous pustulosis [Recovered/Resolved]

NARRATIVE: CASE EVENT DATE: 20131127
